FAERS Safety Report 6909655-0 (Version None)
Quarter: 2010Q3

REPORT INFORMATION
  Report Type: 
  Country: None (occurrence: None)
  Receive Date: 20100805
  Receipt Date: 20100726
  Transmission Date: 20110219
  Serious: Yes (Other)
  Sender: FDA-Public Use
  Company Number: US-ABBOTT-10P-163-0645228-00

PATIENT
  Sex: Female
  Weight: 68.1 kg

DRUGS (8)
  1. HUMIRA [Suspect]
     Indication: RHEUMATOID ARTHRITIS
     Dosage: STOPPED DUE TO INSURANCE REASONS
     Dates: start: 20070101, end: 20090101
  2. HUMIRA [Suspect]
     Route: 058
  3. HUMIRA [Suspect]
     Dosage: SYRINGE
     Route: 058
     Dates: start: 20100706
  4. PREDNISONE [Concomitant]
     Indication: PRODUCT USED FOR UNKNOWN INDICATION
     Route: 048
  5. CALCIUM [Concomitant]
     Indication: PRODUCT USED FOR UNKNOWN INDICATION
  6. WELLBUTRIN [Concomitant]
     Indication: DEPRESSION
  7. IBUPROFEN [Concomitant]
     Indication: PAIN
     Dosage: UP TO SIX A DAY AS NEEDED
  8. HUMIRA [Concomitant]
     Indication: RHEUMATOID ARTHRITIS
     Route: 058
     Dates: start: 20100706

REACTIONS (7)
  - BLISTER [None]
  - BLISTER INFECTED [None]
  - BURNING SENSATION [None]
  - INFECTION [None]
  - RASH PUSTULAR [None]
  - SKIN BURNING SENSATION [None]
  - SWELLING FACE [None]
